FAERS Safety Report 16840461 (Version 3)
Quarter: 2019Q4

REPORT INFORMATION
  Report Type: Spontaneous
  Country: MX (occurrence: MX)
  Receive Date: 20190923
  Receipt Date: 20191104
  Transmission Date: 20200122
  Serious: Yes (Other)
  Sender: FDA-Public Use
  Company Number: PHHY2019MX217901

PATIENT
  Age: 71 Year
  Sex: Male
  Weight: 68 kg

DRUGS (5)
  1. ZYLOPRIM [Concomitant]
     Active Substance: ALLOPURINOL
     Indication: BLOOD URIC ACID
     Dosage: 1 OT, QD
     Route: 048
  2. HIGROTON BLOK [Suspect]
     Active Substance: ATENOLOL\CHLORTHALIDONE
     Indication: HYPERTENSION
     Dosage: 1 OT, QD
     Route: 048
  3. HIGROTON BLOK [Suspect]
     Active Substance: ATENOLOL\CHLORTHALIDONE
     Dosage: 1 OT, QD
     Route: 048
  4. TENORETIC [Concomitant]
     Active Substance: ATENOLOL\CHLORTHALIDONE
     Indication: HYPERTENSION
     Dosage: UNK
     Route: 065
  5. ROSUVASTATIN. [Concomitant]
     Active Substance: ROSUVASTATIN
     Indication: BLOOD TRIGLYCERIDES
     Dosage: 1 OT, QD
     Route: 048

REACTIONS (2)
  - Drug ineffective [Unknown]
  - Blood pressure systolic increased [Recovered/Resolved]
